FAERS Safety Report 4667104-X (Version None)
Quarter: 2005Q2

REPORT INFORMATION
  Report Type: 
  Country: None (occurrence: None)
  Receive Date: 20050520
  Receipt Date: 20050118
  Transmission Date: 20051028
  Serious: Yes (Other)
  Sender: FDA-Public Use
  Company Number: PHBS2005GR01025

PATIENT
  Age: 72 Year
  Sex: Female

DRUGS (2)
  1. CHEMOTHERAPEUTICS,OTHER [Concomitant]
  2. ZOMETA [Suspect]

REACTIONS (4)
  - IMPAIRED HEALING [None]
  - OSTEONECROSIS [None]
  - PAIN [None]
  - TOOTH EXTRACTION [None]
